FAERS Safety Report 5416962-X (Version None)
Quarter: 2007Q3

REPORT INFORMATION
  Report Type: 
  Country: None (occurrence: None)
  Receive Date: 20070816
  Receipt Date: 20070808
  Transmission Date: 20080115
  Serious: Yes (Other)
  Sender: FDA-Public Use
  Company Number: BR-ASTRAZENECA-2007UW19207

PATIENT
  Age: 51 Year
  Sex: Female
  Weight: 98 kg

DRUGS (3)
  1. CRESTOR [Suspect]
     Indication: HYPERCHOLESTEROLAEMIA
     Route: 048
     Dates: start: 20061001
  2. CRESTOR [Suspect]
     Route: 048
  3. MAREVAN [Concomitant]
     Indication: THROMBOSIS
     Route: 048
     Dates: start: 20040101

REACTIONS (3)
  - COUGH [None]
  - RENAL PAIN [None]
  - THROAT IRRITATION [None]
